FAERS Safety Report 6920551-5 (Version None)
Quarter: 2010Q3

REPORT INFORMATION
  Report Type: 
  Country: None (occurrence: None)
  Receive Date: 20100812
  Receipt Date: 20100805
  Transmission Date: 20110219
  Serious: No
  Sender: FDA-Public Use
  Company Number: US-BIOGENIDEC-2010BI027330

PATIENT
  Sex: Male

DRUGS (2)
  1. TYSABRI [Suspect]
     Indication: MULTIPLE SCLEROSIS
     Route: 042
     Dates: start: 20071011, end: 20080303
  2. TYSABRI [Suspect]
     Route: 042
     Dates: start: 20081208

REACTIONS (3)
  - MEMORY IMPAIRMENT [None]
  - MENOPAUSE [None]
  - VEIN DISORDER [None]
